FAERS Safety Report 4494109-4 (Version None)
Quarter: 2004Q4

REPORT INFORMATION
  Report Type: 
  Country: None (occurrence: None)
  Receive Date: 20041105
  Receipt Date: 20041028
  Transmission Date: 20050328
  Serious: Yes (Death)
  Sender: FDA-Public Use
  Company Number: US-MERCK-0410USA04436

PATIENT
  Sex: Female

DRUGS (1)
  1. VIOXX [Suspect]
     Route: 048
     Dates: start: 20000101, end: 20021022

REACTIONS (4)
  - ADVERSE EVENT [None]
  - HYPERTENSION [None]
  - MYOCARDIAL INFARCTION [None]
  - SUDDEN DEATH [None]
